FAERS Safety Report 9464206 (Version 3)
Quarter: 2014Q2

REPORT INFORMATION
  Report Type: Report from Study
  Country: US (occurrence: US)
  Receive Date: 20130819
  Receipt Date: 20140609
  Transmission Date: 20141212
  Serious: Yes (Death, Hospitalization)
  Sender: FDA-Public Use
  Company Number: US-ELI_LILLY_AND_COMPANY-US201307009032

PATIENT
  Age: 65 Year
  Sex: Male

DRUGS (2)
  1. TADALAFIL [Suspect]
     Indication: PULMONARY ARTERIAL HYPERTENSION
     Dosage: 40 MG, QD
     Dates: start: 20120822
  2. TADALAFIL [Suspect]
     Indication: COR PULMONALE CHRONIC
     Dosage: 40 MG, QD

REACTIONS (3)
  - Death [Fatal]
  - Lung disorder [Unknown]
  - Gait disturbance [Unknown]
